FAERS Safety Report 9317879 (Version 1)
Quarter: 2013Q2

REPORT INFORMATION
  Report Type: Spontaneous
  Country: FI (occurrence: None)
  Receive Date: 20130524
  Receipt Date: 20130524
  Transmission Date: 20140414
  Serious: Yes (Life-Threatening)
  Sender: FDA-Public Use
  Company Number: 1726192

PATIENT
  Age: 73 Year
  Sex: Male

DRUGS (4)
  1. GEMCITABINE HYDROCHLORIDE [Suspect]
     Indication: PANCREATIC CARCINOMA
     Dates: start: 20130228, end: 20130319
  2. ENALAPRIL [Concomitant]
  3. METOCLOPRAMIDE HCL [Concomitant]
  4. GRANISETRON [Concomitant]

REACTIONS (3)
  - VIIth nerve paralysis [None]
  - Fatigue [None]
  - Cerebral infarction [None]
